FAERS Safety Report 9740945 (Version 2)
Quarter: 2013Q4

REPORT INFORMATION
  Report Type: Spontaneous
  Country: US (occurrence: US)
  Receive Date: 20131209
  Receipt Date: 20131218
  Transmission Date: 20140711
  Serious: No
  Sender: FDA-Public Use
  Company Number: US-BIOGENIDEC-2013BI100592

PATIENT
  Sex: Female

DRUGS (10)
  1. TECFIDERA [Suspect]
     Indication: MULTIPLE SCLEROSIS
     Route: 048
     Dates: start: 20130815
  2. ACTOS [Concomitant]
  3. ANUSOL HC [Concomitant]
  4. BACLOFEN [Concomitant]
  5. CITALOPRAM HYDROBROMIDE [Concomitant]
  6. DIOVAN HCT [Concomitant]
  7. GABAPENTIN [Concomitant]
  8. HYDROCODONE- ACETAMINOPHEN [Concomitant]
  9. JANUMET [Concomitant]
  10. ZOVIA [Concomitant]

REACTIONS (2)
  - Blood glucose decreased [Unknown]
  - Diarrhoea [Unknown]
